FAERS Safety Report 5026387-7 (Version None)
Quarter: 2006Q2

REPORT INFORMATION
  Report Type: 
  Country: None (occurrence: None)
  Receive Date: 20060426
  Receipt Date: 20060103
  Transmission Date: 20061013
  Serious: Yes (Other)
  Sender: FDA-Public Use
  Company Number: 2006002790

PATIENT
  Age: 43 Year
  Sex: Male
  Weight: 68.0396 kg

DRUGS (4)
  1. LYRICA [Suspect]
     Indication: RAYNAUD'S PHENOMENON
     Dosage: 100 MG (50 MG, 2 IN 1 D), ORAL
     Route: 048
     Dates: start: 20051001, end: 20051201
  2. MORPHINE SULFATE [Concomitant]
  3. CLONAZEPAM [Concomitant]
  4. XANAX [Concomitant]

REACTIONS (3)
  - BLOOD PRESSURE INCREASED [None]
  - MUSCLE SPASMS [None]
  - MUSCLE STRAIN [None]
